FAERS Safety Report 18236905 (Version 1)
Quarter: 2020Q3

REPORT INFORMATION
  Report Type: Spontaneous
  Country: US (occurrence: US)
  Receive Date: 20200907
  Receipt Date: 20200907
  Transmission Date: 20201103
  Serious: Yes (Other)
  Sender: FDA-Public Use
  Company Number: US-SUN PHARMACEUTICAL INDUSTRIES LTD-2020R1-259711

PATIENT
  Age: 56 Year
  Sex: Male

DRUGS (2)
  1. CALCIUM?GLUCONATE [Suspect]
     Active Substance: CALCIUM GLUCONATE
     Indication: BLOOD MAGNESIUM DECREASED
     Dosage: UNK
     Route: 065
  2. FUROSEMIDE. [Suspect]
     Active Substance: FUROSEMIDE
     Indication: BLOOD MAGNESIUM DECREASED
     Dosage: UNK
     Route: 065

REACTIONS (1)
  - Therapeutic response decreased [Unknown]
